FAERS Safety Report 23442920 (Version 1)
Quarter: 2024Q1

REPORT INFORMATION
  Report Type: Spontaneous
  Country: US (occurrence: US)
  Receive Date: 20240125
  Receipt Date: 20240125
  Transmission Date: 20240410
  Serious: No
  Sender: FDA-Public Use
  Company Number: US-TAKEDA-2024TUS005858

PATIENT
  Sex: Female
  Weight: 77 kg

DRUGS (2)
  1. CUVITRU [Suspect]
     Active Substance: HUMAN IMMUNOGLOBULIN G
     Indication: Idiopathic urticaria
     Dosage: 10 GRAM, Q2WEEKS
     Route: 058
  2. CUVITRU [Suspect]
     Active Substance: HUMAN IMMUNOGLOBULIN G
     Dosage: 10 GRAM, Q2WEEKS
     Route: 058

REACTIONS (3)
  - Liquid product physical issue [Unknown]
  - Product dose omission issue [Unknown]
  - Product use in unapproved indication [Unknown]
